FAERS Safety Report 5002770-0 (Version None)
Quarter: 2006Q2

REPORT INFORMATION
  Report Type: 
  Country: None (occurrence: None)
  Receive Date: 20060512
  Receipt Date: 20060510
  Transmission Date: 20061013
  Serious: Yes (Other)
  Sender: FDA-Public Use
  Company Number: 2006S1000376

PATIENT
  Age: 62 Year
  Sex: Female
  Weight: 90.7194 kg

DRUGS (11)
  1. FENTANYL TRANSDERMAL SYSTEM [Suspect]
     Indication: ARTHRITIS
     Dosage: 100 UG/HR; QOD; TRANS
     Dates: start: 20050601, end: 20060101
  2. FENTANYL TRANSDERMAL SYSTEM [Suspect]
     Indication: BACK PAIN
     Dosage: 100 UG/HR; QOD; TRANS
     Dates: start: 20050601, end: 20060101
  3. PANTOPRAZOLE [Concomitant]
  4. CETIRIZINE HCL [Concomitant]
  5. ESCITALOPRAM OXALATE [Concomitant]
  6. CALCIUM GLUCONATE [Concomitant]
  7. QUININE SULFATE [Concomitant]
  8. TOCOPHEROL CONCENTRATE CAP [Concomitant]
  9. ACETYLSALICYLIC ACID SRT [Concomitant]
  10. CYANOCOBALAMIN [Concomitant]
  11. VITAMINS NOS [Concomitant]

REACTIONS (7)
  - DIARRHOEA [None]
  - DRUG WITHDRAWAL SYNDROME [None]
  - INCORRECT DRUG ADMINISTRATION DURATION [None]
  - MUSCLE SPASMS [None]
  - MUSCLE TIGHTNESS [None]
  - NAUSEA [None]
  - PAIN [None]
